FAERS Safety Report 17684673 (Version 1)
Quarter: 2020Q2

REPORT INFORMATION
  Report Type: Spontaneous
  Country: US (occurrence: US)
  Receive Date: 20200417
  Receipt Date: 20200417
  Transmission Date: 20200714
  Serious: Yes (Life-Threatening, Hospitalization)
  Sender: FDA-Public Use
  Company Number: None

PATIENT
  Age: 52 Year
  Sex: Male
  Weight: 72.12 kg

DRUGS (1)
  1. CHLORTHALIDONE (CHLORTHIALIDONE 50MG TAB) [Suspect]
     Active Substance: CHLORTHALIDONE
     Indication: HYPERTENSION
     Route: 048
     Dates: start: 20160105, end: 20180513

REACTIONS (2)
  - Electrocardiogram QT prolonged [None]
  - Hypokalaemia [None]

NARRATIVE: CASE EVENT DATE: 20180513
